FAERS Safety Report 7417561-0 (Version None)
Quarter: 2011Q2

REPORT INFORMATION
  Report Type: 
  Country: None (occurrence: None)
  Receive Date: 20110415
  Receipt Date: 20110412
  Transmission Date: 20111010
  Serious: Yes (Death, Other)
  Sender: FDA-Public Use
  Company Number: GB-B.I. PHARMACEUTICALS,INC./RIDGEFIELD-2011-UK-00073UK

PATIENT
  Age: 86 Year
  Sex: Female

DRUGS (7)
  1. QUININE SULFATE [Concomitant]
  2. AMLODIPINE [Concomitant]
  3. BISOPROLOL [Concomitant]
  4. ASPIRIN [Concomitant]
  5. PARACETAMOL [Concomitant]
  6. OMEPRAZOLE [Concomitant]
  7. PRADAXA [Suspect]
     Indication: THROMBOSIS PROPHYLAXIS

REACTIONS (3)
  - WOUND SECRETION [None]
  - DEATH [None]
  - SECRETION DISCHARGE [None]
